FAERS Safety Report 7549873-4 (Version None)
Quarter: 2011Q2

REPORT INFORMATION
  Report Type: 
  Country: None (occurrence: None)
  Receive Date: 20110615
  Receipt Date: 20110606
  Transmission Date: 20111010
  Serious: Yes (Hospitalization)
  Sender: FDA-Public Use
  Company Number: US-ASTRAZENECA-2010SE30519

PATIENT
  Age: 73 Year
  Sex: Female

DRUGS (2)
  1. NEXIUM [Suspect]
     Dosage: TWO CAPSULES DAILY
     Route: 048
  2. CRESTOR [Suspect]
     Route: 048

REACTIONS (3)
  - WRONG DRUG ADMINISTERED [None]
  - KNEE ARTHROPLASTY [None]
  - GASTROOESOPHAGEAL REFLUX DISEASE [None]
